FAERS Safety Report 10563225 (Version 1)
Quarter: 2014Q4

REPORT INFORMATION
  Report Type: Spontaneous
  Country: US (occurrence: None)
  Receive Date: 20141103
  Receipt Date: 20141103
  Transmission Date: 20150529
  Serious: No
  Sender: FDA-Public Use
  Company Number: None

PATIENT
  Age: 72 Year
  Sex: Female

DRUGS (19)
  1. CHLORHEXADINE [Concomitant]
  2. PHENYLEPHRINE [Concomitant]
     Active Substance: PHENYLEPHRINE\PHENYLEPHRINE HYDROCHLORIDE
  3. CISATRACURIUM [Concomitant]
     Active Substance: CISATRACURIUM
  4. VANCOMYCIN [Concomitant]
     Active Substance: VANCOMYCIN
  5. ASPIRIN. [Concomitant]
     Active Substance: ASPIRIN
  6. FENTANYL. [Concomitant]
     Active Substance: FENTANYL
  7. FUROSEMIDE. [Concomitant]
     Active Substance: FUROSEMIDE
  8. ACETAMINOPHEN. [Concomitant]
     Active Substance: ACETAMINOPHEN
  9. AMIODARONE [Concomitant]
     Active Substance: AMIODARONE
  10. FAMETIDINE [Concomitant]
  11. SIMVASTATIN. [Concomitant]
     Active Substance: SIMVASTATIN
  12. BISACODYL. [Concomitant]
     Active Substance: BISACODYL
  13. CEFEPIME [Concomitant]
     Active Substance: CEFEPIME\CEFEPIME HYDROCHLORIDE
  14. INSULIN [Concomitant]
     Active Substance: INSULIN NOS
  15. LORAZEPAM. [Concomitant]
     Active Substance: LORAZEPAM
  16. VASOPRESSIN. [Concomitant]
     Active Substance: VASOPRESSIN
  17. HEPARIN [Suspect]
     Active Substance: HEPARIN SODIUM
     Indication: THROMBOSIS PROPHYLAXIS
     Dosage: 5000 UNITS, EVERY 8 HOURS, SC
     Route: 058
     Dates: start: 20140722, end: 20140801
  18. DOCUSATE [Concomitant]
     Active Substance: DOCUSATE
  19. SILDENAFIL. [Concomitant]
     Active Substance: SILDENAFIL

REACTIONS (2)
  - Heparin-induced thrombocytopenia [None]
  - Radial pulse abnormal [None]

NARRATIVE: CASE EVENT DATE: 20140802
